FAERS Safety Report 8122936-0 (Version None)
Quarter: 2012Q1

REPORT INFORMATION
  Report Type: 
  Country: None (occurrence: None)
  Receive Date: 20120208
  Receipt Date: 20120203
  Transmission Date: 20120608
  Serious: Yes (Death, Other)
  Sender: FDA-Public Use
  Company Number: PHHY2012IT009798

PATIENT
  Age: 50 Year
  Sex: Female

DRUGS (4)
  1. FLUCONAZOLE [Suspect]
     Indication: CANDIDIASIS
     Route: 042
  2. VANCOMYCIN [Concomitant]
     Indication: PYREXIA
  3. GANCICLOVIR SODIUM [Concomitant]
  4. PIPERACILLIN AND TAZOBACTAM [Concomitant]
     Indication: PYREXIA

REACTIONS (7)
  - LIVER FUNCTION TEST ABNORMAL [None]
  - LIVER DISORDER [None]
  - LIVER INJURY [None]
  - PYREXIA [None]
  - LEUKOCYTOSIS [None]
  - HEPATIC FAILURE [None]
  - GENERAL PHYSICAL HEALTH DETERIORATION [None]
